FAERS Safety Report 17795863 (Version 6)
Quarter: 2020Q3

REPORT INFORMATION
  Report Type: Report from Study
  Country: GB (occurrence: GB)
  Receive Date: 20200516
  Receipt Date: 20200824
  Transmission Date: 20201102
  Serious: Yes (Other)
  Sender: FDA-Public Use
  Company Number: GB-SAMSUNG BIOEPIS-SB-2020-16270

PATIENT
  Sex: Female

DRUGS (1)
  1. IMRALDI [Suspect]
     Active Substance: ADALIMUMAB
     Indication: COLITIS ULCERATIVE
     Route: 058
     Dates: start: 20200227

REACTIONS (6)
  - Influenza like illness [Unknown]
  - Colitis ulcerative [Unknown]
  - Suspected COVID-19 [Unknown]
  - Dyspnoea [Unknown]
  - Migraine [Unknown]
  - Stress [Unknown]
